FAERS Safety Report 9696925 (Version 2)
Quarter: 2013Q4

REPORT INFORMATION
  Report Type: Spontaneous
  Country: US (occurrence: US)
  Receive Date: 20131119
  Receipt Date: 20131119
  Transmission Date: 20140711
  Serious: No
  Sender: FDA-Public Use
  Company Number: US-GILEAD-2007-0013956

PATIENT
  Sex: Female
  Weight: 117.93 kg

DRUGS (12)
  1. LETAIRIS [Suspect]
     Indication: PULMONARY ARTERIAL HYPERTENSION
     Route: 048
     Dates: start: 2007, end: 2007
  2. CELEBREX [Concomitant]
     Route: 048
  3. REVATIO [Concomitant]
     Route: 048
  4. TRILEPTAL [Concomitant]
     Route: 048
  5. ACYCLOVIR [Concomitant]
     Route: 048
  6. RISPERDAL [Concomitant]
     Route: 048
  7. ALBUTEROL [Concomitant]
     Route: 055
  8. CLONAZEPAM [Concomitant]
     Route: 048
  9. TYLENOL [Concomitant]
     Route: 048
  10. MAXZIDE [Concomitant]
     Dosage: 75/50
     Route: 048
  11. DEPAKOTE [Concomitant]
     Route: 048
     Dates: start: 20071006
  12. EFFEXOR [Concomitant]
     Route: 048

REACTIONS (1)
  - Fluid retention [Recovered/Resolved]
